FAERS Safety Report 6910273-9 (Version None)
Quarter: 2010Q3

REPORT INFORMATION
  Report Type: 
  Country: None (occurrence: None)
  Receive Date: 20100806
  Receipt Date: 20100728
  Transmission Date: 20110219
  Serious: Yes (Hospitalization, Other)
  Sender: FDA-Public Use
  Company Number: HQWYE234120MAR07

PATIENT
  Sex: Female
  Weight: 64.92 kg

DRUGS (7)
  1. DESVENLAFAXINE SUCCINATE MONOHYDRATE [Suspect]
     Indication: DEPRESSION
     Route: 048
     Dates: start: 20070221, end: 20070227
  2. DESVENLAFAXINE SUCCINATE MONOHYDRATE [Suspect]
     Route: 048
     Dates: start: 20070228, end: 20070306
  3. DESVENLAFAXINE SUCCINATE MONOHYDRATE [Suspect]
     Route: 048
     Dates: start: 20070307, end: 20070317
  4. CALCIUM [Concomitant]
     Indication: OSTEOPENIA
     Route: 048
     Dates: start: 20041216
  5. TUMS [Concomitant]
     Indication: GASTROOESOPHAGEAL REFLUX DISEASE
     Dosage: 2 TABLETS AS NEEDED
     Route: 048
     Dates: start: 20060801
  6. FAMOTIDINE [Concomitant]
     Indication: GASTROOESOPHAGEAL REFLUX DISEASE
     Dosage: 10 MG AS NEEDED
     Route: 048
     Dates: start: 20060801
  7. MULTI-VITAMINS [Concomitant]
     Indication: MEDICAL DIET
     Route: 048
     Dates: start: 20041216

REACTIONS (2)
  - HEPATITIS [None]
  - HEPATOMEGALY [None]
